FAERS Safety Report 7780101-0 (Version None)
Quarter: 2011Q3

REPORT INFORMATION
  Report Type: 
  Country: None (occurrence: None)
  Receive Date: 20110927
  Receipt Date: 20110330
  Transmission Date: 20111222
  Serious: No
  Sender: FDA-Public Use
  Company Number: US-ASTRAZENECA-2011SE18351

PATIENT
  Age: 65 Year
  Sex: Male
  Weight: 78.9 kg

DRUGS (2)
  1. SEROQUEL XR [Suspect]
     Indication: DEPRESSION
     Route: 048
  2. TOPAMAX [Concomitant]
     Indication: ALCOHOL USE

REACTIONS (3)
  - COUGH [None]
  - RASH [None]
  - DRY THROAT [None]
